FAERS Safety Report 9803497 (Version 1)
Quarter: 2014Q1

REPORT INFORMATION
  Report Type: Spontaneous
  Country: DE (occurrence: None)
  Receive Date: 20140103
  Receipt Date: 20140103
  Transmission Date: 20141002
  Serious: Yes (Other)
  Sender: FDA-Public Use
  Company Number: KAD201311-001523

PATIENT
  Age: 50 Year
  Sex: Male

DRUGS (3)
  1. RIBAVIRIN [Suspect]
     Indication: HEPATITIS C
  2. PEGYLATED INTERFERON [Suspect]
     Indication: HEPATITIS C
  3. TELAPREVIR [Suspect]
     Indication: HEPATITIS C
     Dosage: 3 CAPSULES OF 375 MG IN MORNING AND EVENING

REACTIONS (4)
  - Anaemia [None]
  - Leukopenia [None]
  - Thrombocytopenia [None]
  - Renal function test abnormal [None]
